FAERS Safety Report 7377616-6 (Version None)
Quarter: 2011Q1

REPORT INFORMATION
  Report Type: 
  Country: None (occurrence: None)
  Receive Date: 20110316
  Receipt Date: 20100903
  Transmission Date: 20110831
  Serious: Yes (Other)
  Sender: FDA-Public Use
  Company Number: 028468

PATIENT
  Sex: Male

DRUGS (1)
  1. CERTOLIZUMAB PEGOL [Suspect]
     Indication: RHEUMATOID ARTHRITIS
     Dosage: 400 MG 1X/2 WEEKS, CZP 400 MG AT WEEKS 0, 2 AND 4  (200 MG 1X2 WEEKS, CZP FOLLOWED BY 200MG, SUBCUTA
     Route: 058
     Dates: start: 20090907

REACTIONS (1)
  - NECROSIS [None]
